FAERS Safety Report 6932718-0 (Version None)
Quarter: 2010Q3

REPORT INFORMATION
  Report Type: 
  Country: None (occurrence: None)
  Receive Date: 20100819
  Receipt Date: 20100811
  Transmission Date: 20110219
  Serious: No
  Sender: FDA-Public Use
  Company Number: US-US-EMD SERONO, INC.-7011709

PATIENT
  Sex: Female

DRUGS (6)
  1. REBIF [Suspect]
     Indication: PRODUCT USED FOR UNKNOWN INDICATION
     Route: 058
     Dates: start: 20100519, end: 20100614
  2. NEXIUM [Suspect]
  3. DEXILANT [Suspect]
     Dates: end: 20100101
  4. CARAFATE [Suspect]
     Dates: end: 20100101
  5. CIPRO [Suspect]
     Dates: end: 20100101
  6. SINGULAIR [Suspect]
     Dates: end: 20100101

REACTIONS (2)
  - AMENORRHOEA [None]
  - LIVER INJURY [None]
